FAERS Safety Report 12505270 (Version 3)
Quarter: 2016Q3

REPORT INFORMATION
  Report Type: Spontaneous
  Country: BR (occurrence: BR)
  Receive Date: 20160628
  Receipt Date: 20160709
  Transmission Date: 20161109
  Serious: Yes (Death, Hospitalization, Other)
  Sender: FDA-Public Use
  Company Number: BR-AMGEN-BRASP2016082474

PATIENT
  Age: 82 Year
  Sex: Female

DRUGS (2)
  1. METHOTREXATE. [Concomitant]
     Active Substance: METHOTREXATE
     Dosage: UNK
     Route: 048
     Dates: start: 2013, end: 2016
  2. ENBREL [Suspect]
     Active Substance: ETANERCEPT
     Indication: PRODUCT USED FOR UNKNOWN INDICATION
     Dosage: UNK
     Route: 065
     Dates: start: 20160406, end: 2016

REACTIONS (10)
  - Death [Fatal]
  - Asthenia [Unknown]
  - Eating disorder [Unknown]
  - Lung infiltration [Unknown]
  - Anaemia [Unknown]
  - Cough [Unknown]
  - Pulmonary sepsis [Unknown]
  - Thrombocytopenia [Unknown]
  - Pyrexia [Unknown]
  - Leukopenia [Unknown]

NARRATIVE: CASE EVENT DATE: 2016
